FAERS Safety Report 17412867 (Version 1)
Quarter: 2020Q1

REPORT INFORMATION
  Report Type: Spontaneous
  Country: US (occurrence: US)
  Receive Date: 20200213
  Receipt Date: 20200213
  Transmission Date: 20200409
  Serious: No
  Sender: FDA-Public Use
  Company Number: US-ELI_LILLY_AND_COMPANY-US202002005966

PATIENT
  Age: 62 Year
  Sex: Female

DRUGS (3)
  1. HUMALOG [Suspect]
     Active Substance: INSULIN LISPRO
     Indication: TYPE 2 DIABETES MELLITUS
     Dosage: UPTO 100 U DAILY, PRN
     Route: 058
     Dates: start: 2018
  2. HUMALOG [Suspect]
     Active Substance: INSULIN LISPRO
     Dosage: UPTO 100 U DAILY, PRN
     Route: 058
     Dates: start: 2018
  3. TOUJEO [Concomitant]
     Active Substance: INSULIN GLARGINE
     Indication: TYPE 2 DIABETES MELLITUS

REACTIONS (1)
  - Glycosylated haemoglobin increased [Unknown]
